FAERS Safety Report 8060708-6 (Version None)
Quarter: 2012Q1

REPORT INFORMATION
  Report Type: 
  Country: None (occurrence: None)
  Receive Date: 20120120
  Receipt Date: 20120112
  Transmission Date: 20120608
  Serious: Yes (Hospitalization, Other)
  Sender: FDA-Public Use
  Company Number: US-MPIJNJ-2012-00272

PATIENT
  Age: 11 Year
  Sex: Male
  Weight: 14.3 kg

DRUGS (14)
  1. DOXORUBICIN HCL [Suspect]
     Indication: B PRECURSOR TYPE ACUTE LEUKAEMIA
     Dosage: 60 MG/M2, CYCLIC
     Route: 042
     Dates: start: 20111213, end: 20111213
  2. VINCRISTINE [Suspect]
     Indication: B PRECURSOR TYPE ACUTE LEUKAEMIA
     Dosage: 1.5 MG/M2, CYCLIC
     Route: 040
     Dates: start: 20111213, end: 20120103
  3. MICAFUNGIN [Concomitant]
     Indication: PYREXIA
  4. CEFEPIME [Concomitant]
     Indication: PROPHYLAXIS
  5. PEGASPARGASE [Suspect]
     Dosage: UNK
     Route: 042
     Dates: start: 20111213, end: 20120103
  6. PREDNISONE TAB [Suspect]
     Indication: B PRECURSOR TYPE ACUTE LEUKAEMIA
     Dosage: 20 MG/M2, CYCLIC
     Route: 048
     Dates: start: 20111213, end: 20120109
  7. CLINDAMYCIN [Concomitant]
     Indication: PYREXIA
  8. VANCOMYCIN [Concomitant]
     Indication: PRODUCT USED FOR UNKNOWN INDICATION
  9. CYTARABINE [Suspect]
     Indication: B PRECURSOR TYPE ACUTE LEUKAEMIA
     Dosage: 70 MG, CYCLIC
     Route: 037
     Dates: start: 20111213, end: 20111213
  10. METHOTREXATE [Suspect]
     Indication: B PRECURSOR TYPE ACUTE LEUKAEMIA
     Dosage: UNK
     Route: 037
     Dates: start: 20111213, end: 20120110
  11. BACTRIM [Concomitant]
     Indication: PROPHYLAXIS
  12. VELCADE [Suspect]
     Indication: B PRECURSOR TYPE ACUTE LEUKAEMIA
     Dosage: 1.3 MG/M2, CYCLIC
     Route: 040
     Dates: start: 20111213, end: 20111223
  13. PEGASPARGASE [Suspect]
     Indication: B PRECURSOR TYPE ACUTE LEUKAEMIA
     Dosage: 2500 UNK, UNK
     Route: 030
     Dates: start: 20111213, end: 20120103
  14. MEROPENEM [Concomitant]
     Indication: PYREXIA

REACTIONS (7)
  - MUCOSAL INFECTION [None]
  - SIMPLEX VIRUS TEST POSITIVE [None]
  - FEBRILE NEUTROPENIA [None]
  - DEVICE RELATED INFECTION [None]
  - PROCTITIS [None]
  - BONE MARROW FAILURE [None]
  - STAPHYLOCOCCAL INFECTION [None]
